FAERS Safety Report 24568518 (Version 3)
Quarter: 2024Q4

REPORT INFORMATION
  Report Type: Spontaneous
  Country: US (occurrence: US)
  Receive Date: 20241031
  Receipt Date: 20241125
  Transmission Date: 20250115
  Serious: Yes (Hospitalization)
  Sender: NOVARTIS
  Company Number: US-002147023-NVSC2024US211707

PATIENT
  Age: 64 Year
  Sex: Male
  Weight: 92.6 kg

DRUGS (1)
  1. PLUVICTO [Suspect]
     Active Substance: LUTETIUM LU-177 VIPIVOTIDE TETRAXETAN
     Indication: Prostate cancer
     Dosage: UNK (EVERY 6 WEEKS)
     Route: 042
     Dates: start: 20240207, end: 20241028

REACTIONS (4)
  - General physical health deterioration [Not Recovered/Not Resolved]
  - Abdominal pain [Unknown]
  - Hepatic enzyme increased [Recovering/Resolving]
  - Biliary obstruction [Unknown]

NARRATIVE: CASE EVENT DATE: 20241028
